FAERS Safety Report 7673778-1 (Version None)
Quarter: 2011Q3

REPORT INFORMATION
  Report Type: 
  Country: None (occurrence: None)
  Receive Date: 20110810
  Receipt Date: 20110713
  Transmission Date: 20111222
  Serious: Yes (Hospitalization)
  Sender: FDA-Public Use
  Company Number: JP-PFIZER INC-2011086525

PATIENT
  Age: 80 Year
  Sex: Female

DRUGS (5)
  1. LIPITOR [Suspect]
     Indication: HYPERCHOLESTEROLAEMIA
     Dosage: 10 MG, 2X/DAY
     Route: 048
     Dates: start: 20090925, end: 20110408
  2. FERROUS CITRATE [Concomitant]
     Indication: IRON DEFICIENCY ANAEMIA
     Dosage: 50 MG, 1X/DAY
     Route: 048
     Dates: start: 20081008
  3. MUCOSTA [Suspect]
     Indication: GASTRITIS
     Dosage: 100 MG, 3X/DAY
     Route: 048
     Dates: start: 20000608, end: 20110408
  4. PERSANTIN [Suspect]
     Indication: GLOMERULONEPHRITIS CHRONIC
     Dosage: 50 MG, 3X/DAY
     Route: 048
     Dates: start: 20000608, end: 20110408
  5. OLMESARTAN MEDOXOMIL [Suspect]
     Indication: HYPERTENSION
     Dosage: 40 MG, 1X/DAY
     Route: 048
     Dates: start: 20091127, end: 20110408

REACTIONS (1)
  - THROMBOCYTOPENIA [None]
